FAERS Safety Report 8266316-6 (Version None)
Quarter: 2012Q1

REPORT INFORMATION
  Report Type: 
  Country: None (occurrence: None)
  Receive Date: 20120327
  Receipt Date: 20090915
  Transmission Date: 20120608
  Serious: Yes (Other)
  Sender: FDA-Public Use
  Company Number: PHEH2009US11248

PATIENT
  Age: 39 Year
  Sex: Male
  Weight: 56.6089 kg

DRUGS (1)
  1. GLEEVEC [Suspect]
     Indication: GASTROINTESTINAL NEOPLASM
     Dosage: 400 MG, BID, ORAL
     Route: 048
     Dates: start: 20090820

REACTIONS (8)
  - VOMITING [None]
  - PALPITATIONS [None]
  - FATIGUE [None]
  - MUSCULAR WEAKNESS [None]
  - PULMONARY EMBOLISM [None]
  - DEPRESSION [None]
  - CHEST PAIN [None]
  - NAUSEA [None]
